FAERS Safety Report 8114051-7 (Version None)
Quarter: 2012Q1

REPORT INFORMATION
  Report Type: 
  Country: None (occurrence: None)
  Receive Date: 20120203
  Receipt Date: 20120125
  Transmission Date: 20120608
  Serious: Yes (Other)
  Sender: FDA-Public Use
  Company Number: US-ASTRAZENECA-2011SE37290

PATIENT
  Age: 49 Year
  Sex: Female

DRUGS (3)
  1. NEXIUM [Suspect]
     Dosage: 1 CAPSULE
     Route: 048
  2. NEXIUM [Suspect]
     Dosage: 2 CAPSULE
     Route: 048
  3. PRILOSEC [Suspect]
     Route: 048

REACTIONS (11)
  - GAIT DISTURBANCE [None]
  - MALAISE [None]
  - BREAST CANCER [None]
  - HYPERTENSION [None]
  - ORAL PAIN [None]
  - DRUG DOSE OMISSION [None]
  - WRONG DRUG ADMINISTERED [None]
  - GASTRIC DISORDER [None]
  - INCORRECT DOSE ADMINISTERED [None]
  - OBSTRUCTION GASTRIC [None]
  - HEARING IMPAIRED [None]
